FAERS Safety Report 4525334-1 (Version None)
Quarter: 2004Q4

REPORT INFORMATION
  Report Type: 
  Country: None (occurrence: None)
  Receive Date: 20041117
  Receipt Date: 20040428
  Transmission Date: 20050328
  Serious: Yes (Other)
  Sender: FDA-Public Use
  Company Number: 2004S1001252

PATIENT
  Age: 22 Year
  Sex: Male

DRUGS (7)
  1. CLOZAPINE [Suspect]
     Indication: ANXIETY DISORDER
     Dosage: 300MG QD, ORAL
     Route: 048
     Dates: start: 20040409, end: 20040427
  2. CLOZAPINE [Suspect]
     Indication: PSYCHOTIC DISORDER
     Dosage: 300MG QD, ORAL
     Route: 048
     Dates: start: 20040409, end: 20040427
  3. LITHIUM CARBONATE [Concomitant]
  4. LAMOTRIGINE [Concomitant]
  5. PROPRANOLOL HYDROCHLORIDE [Concomitant]
  6. OMEPRAZOLE [Concomitant]
  7. TRAZODONE HCL [Concomitant]

REACTIONS (1)
  - LEUKOPENIA [None]
